FAERS Safety Report 14071438 (Version 1)
Quarter: 2017Q4

REPORT INFORMATION
  Report Type: Report from Study
  Country: US (occurrence: US)
  Receive Date: 20171011
  Receipt Date: 20171011
  Transmission Date: 20180321
  Serious: Yes (Death, Hospitalization, Other)
  Sender: FDA-Public Use
  Company Number: PHEH2017US032783

PATIENT
  Sex: Female

DRUGS (1)
  1. ENTRESTO [Suspect]
     Active Substance: SACUBITRIL\VALSARTAN
     Indication: PRODUCT USED FOR UNKNOWN INDICATION
     Dosage: UNK
     Route: 065
     Dates: start: 20161018

REACTIONS (7)
  - Chest pain [Unknown]
  - Dyspnoea [Unknown]
  - Chronic kidney disease [Unknown]
  - Death [Fatal]
  - Cardiac failure chronic [Unknown]
  - Malaise [Unknown]
  - Cardiomyopathy [Unknown]
